FAERS Safety Report 8609982 (Version 2)
Quarter: 2012Q4

REPORT INFORMATION
  Report Type: 
  Country: GR (occurrence: GR)
  Receive Date: 20120612
  Receipt Date: 20121007
  Transmission Date: 20130627
  Serious: Yes (Other)
  Sender: FDA-Public Use
  Company Number: PHHY2012GR048706

PATIENT
  Age: 75 Year
  Sex: Male

DRUGS (1)
  1. STALEVO [Suspect]
     Indication: PARKINSON^S DISEASE
     Dosage: UNK

REACTIONS (5)
  - Paralysis [Unknown]
  - Asthenia [Unknown]
  - Choking [Unknown]
  - Dyspnoea [Unknown]
  - Hyperhidrosis [Unknown]
